FAERS Safety Report 25099999 (Version 1)
Quarter: 2025Q1

REPORT INFORMATION
  Report Type: Spontaneous
  Country: US (occurrence: None)
  Receive Date: 20250319
  Receipt Date: 20250319
  Transmission Date: 20250409
  Serious: Yes (Disabling)
  Sender: FDA-CTU
  Company Number: None

PATIENT
  Age: 66 Year
  Sex: Female
  Weight: 56.25 kg

DRUGS (4)
  1. PROPOFOL [Suspect]
     Active Substance: PROPOFOL
     Indication: Foot operation
     Dates: start: 20230323, end: 20230323
  2. ACYCLOVIR [Concomitant]
     Active Substance: ACYCLOVIR
  3. VITAMINS [Concomitant]
     Active Substance: VITAMINS
  4. B12 supplement [Concomitant]

REACTIONS (5)
  - Parosmia [None]
  - Phantom shocks [None]
  - Anosmia [None]
  - Ageusia [None]
  - Quality of life decreased [None]

NARRATIVE: CASE EVENT DATE: 20230323
